FAERS Safety Report 6360972-5 (Version None)
Quarter: 2009Q3

REPORT INFORMATION
  Report Type: 
  Country: None (occurrence: None)
  Receive Date: 20090916
  Receipt Date: 20090916
  Transmission Date: 20100115
  Serious: No
  Sender: FDA-Public Use
  Company Number: None

PATIENT
  Age: 31 Year
  Sex: Male
  Weight: 109.1 kg

DRUGS (1)
  1. TOPAMAX [Suspect]
     Indication: OBESITY
     Dosage: 8/2009 7 TO 10 DAYS
     Dates: start: 20090801

REACTIONS (4)
  - ANGLE CLOSURE GLAUCOMA [None]
  - CORNEAL OEDEMA [None]
  - EYE PAIN [None]
  - VISUAL ACUITY REDUCED [None]
